FAERS Safety Report 6424356-3 (Version None)
Quarter: 2009Q4

REPORT INFORMATION
  Report Type: 
  Country: None (occurrence: None)
  Receive Date: 20091103
  Receipt Date: 20091022
  Transmission Date: 20100525
  Serious: Yes (Other)
  Sender: FDA-Public Use
  Company Number: US-JNJFOC-20091007330

PATIENT
  Age: 11 Year
  Sex: Male

DRUGS (3)
  1. TYLENOL [Suspect]
     Route: 042
  2. TYLENOL [Suspect]
     Indication: PREMEDICATION
     Route: 042
  3. VERSED [Suspect]
     Indication: PREMEDICATION
     Route: 042

REACTIONS (3)
  - INCORRECT ROUTE OF DRUG ADMINISTRATION [None]
  - LOSS OF CONSCIOUSNESS [None]
  - WRONG DRUG ADMINISTERED [None]
